FAERS Safety Report 5096341-8 (Version None)
Quarter: 2006Q3

REPORT INFORMATION
  Report Type: 
  Country: None (occurrence: None)
  Receive Date: 20060830
  Receipt Date: 20060816
  Transmission Date: 20061208
  Serious: Yes (Other)
  Sender: FDA-Public Use
  Company Number: 2006RR-03459

PATIENT
  Age: 74 Year
  Sex: Female
  Weight: 63.5 kg

DRUGS (5)
  1. METFORMIN (METFORMIN HYDROCHLORIDE) TABLET, 500MG [Suspect]
     Indication: DIABETES MELLITUS
     Dosage: 500 MG TID ORAL
     Route: 048
     Dates: start: 20060418
  2. DISPERSIBLE ASPIRIN TABLETS BP [Concomitant]
  3. ATENOLOL TABLETS BP [Concomitant]
  4. PANTOPRAZOLE SODIUM [Concomitant]
  5. SIMVASTATIN FILM COATED TABLETS [Concomitant]

REACTIONS (2)
  - CHEST DISCOMFORT [None]
  - COUGH [None]
